FAERS Safety Report 18989801 (Version 1)
Quarter: 2021Q1

REPORT INFORMATION
  Report Type: Spontaneous
  Country: HK (occurrence: HK)
  Receive Date: 20210310
  Receipt Date: 20210310
  Transmission Date: 20210420
  Serious: Yes (Hospitalization)
  Sender: FDA-Public Use
  Company Number: HK-ROCHE-2744360

PATIENT
  Sex: Female

DRUGS (2)
  1. TECENTRIQ [Suspect]
     Active Substance: ATEZOLIZUMAB
     Indication: TRIPLE NEGATIVE BREAST CANCER
     Route: 042
  2. ABRAXANE [Concomitant]
     Active Substance: PACLITAXEL

REACTIONS (4)
  - Hepatic enzyme increased [Unknown]
  - Hepatic failure [Unknown]
  - Off label use [Unknown]
  - Intentional product use issue [Unknown]
